FAERS Safety Report 16396754 (Version 4)
Quarter: 2024Q3

REPORT INFORMATION
  Report Type: Spontaneous
  Country: JP (occurrence: JP)
  Receive Date: 20190606
  Receipt Date: 20240805
  Transmission Date: 20241017
  Serious: Yes (Other)
  Sender: MERCK
  Company Number: JP-009507513-1905JPN006220

PATIENT
  Age: 74 Year
  Sex: Male
  Weight: 50 kg

DRUGS (12)
  1. EMEND [Interacting]
     Active Substance: APREPITANT
     Indication: Prophylaxis of nausea and vomiting
     Dosage: 125 MG (2016/12/6, 2017/1/13, 2/14, 3/13, 4/25, 6/6, 7/11, 8/22, 9/26, 10/31 , 12/5)
     Route: 048
     Dates: start: 20161206, end: 20171205
  2. EMEND [Interacting]
     Active Substance: APREPITANT
     Dosage: 80 MG(2016/12/7, 12/8, 2017/1/14, 1/15, 2/15, 2/16, 3/14, 3/15, 4/26, 4/27)
     Route: 048
  3. EMEND [Interacting]
     Active Substance: APREPITANT
     Dosage: 80 MG(2017/6/7, 6/8, 7/12, 7/13, 8/23, 8/24, 9/27, 9/28, 11 /1, 11 /2, 12/6, 12/7);
     Route: 048
  4. DEXAMETHASONE [Interacting]
     Active Substance: DEXAMETHASONE
     Indication: Prophylaxis of nausea and vomiting
     Dosage: 8 MG (2016/12/6, 2017/1/13, 2/14, 3/13, 4/25, 6/6)
     Route: 042
     Dates: start: 20161206, end: 20170606
  5. DEXAMETHASONE [Interacting]
     Active Substance: DEXAMETHASONE
     Dosage: 4 MG (2017/7/11, 8/22)
     Route: 042
     Dates: start: 20170711, end: 20170822
  6. DEXAMETHASONE [Interacting]
     Active Substance: DEXAMETHASONE
     Indication: Prophylaxis of nausea and vomiting
     Dosage: 8 MG (2016/12/7-12/9, 2017/1/14-1 /16, 2/15-2/17,3/14-3/16, 4/26-4/28, 6/7-6/9)
     Route: 048
     Dates: start: 20161207, end: 20170609
  7. DEXAMETHASONE [Interacting]
     Active Substance: DEXAMETHASONE
     Dosage: 4 MG (2017/7/12-7/14, 8/23- 8/25)
     Route: 048
     Dates: start: 20170712, end: 20170825
  8. MAGNESIUM OXIDE [Concomitant]
     Active Substance: MAGNESIUM OXIDE
     Dosage: UNK
  9. SILODOSIN [Concomitant]
     Active Substance: SILODOSIN
     Dosage: UNK
  10. TS-1 [Concomitant]
     Active Substance: GIMERACIL\OTERACIL POTASSIUM\TEGAFUR
     Dosage: UNK
  11. CISPLATIN [Concomitant]
     Active Substance: CISPLATIN
     Dosage: UNK
  12. AZASETRON HYDROCHLORIDE [Concomitant]
     Active Substance: AZASETRON HYDROCHLORIDE
     Dosage: UNK

REACTIONS (3)
  - Drug level increased [Unknown]
  - Hiccups [Recovered/Resolved]
  - Drug interaction [Unknown]

NARRATIVE: CASE EVENT DATE: 20161208
